FAERS Safety Report 5129118-5 (Version None)
Quarter: 2006Q4

REPORT INFORMATION
  Report Type: 
  Country: None (occurrence: None)
  Receive Date: 20061011
  Receipt Date: 20060922
  Transmission Date: 20070319
  Serious: Yes (Other)
  Sender: FDA-Public Use
  Company Number: CA200609004123

PATIENT
  Age: 55 Year
  Sex: Female
  Weight: 52.2 kg

DRUGS (21)
  1. FORTEO [Suspect]
     Indication: OSTEOPOROSIS
     Dosage: 20 UG, DAILY (1/D);
     Dates: start: 20050709
  2. FORTEO [Concomitant]
  3. ADVAIR (FLUICASONE PROPIONATE, SALMETEROL XINAFOATE) [Concomitant]
  4. VENTOLIN [Concomitant]
  5. SPIRIVA [Concomitant]
  6. PREDNISONE TAB [Concomitant]
  7. ESTROGENIC SUBSTANCE [Concomitant]
  8. VFEND [Concomitant]
  9. TYLENOL NO. 2 (CAFFEINE, CODEINE PHOSPHATE, PARACETAMOL) [Concomitant]
  10. OXYCODONE HCL [Concomitant]
  11. ZOTRIX (CAPSAICIN) [Concomitant]
  12. VITAMIN D [Concomitant]
  13. ZINC [Concomitant]
  14. OSCAL (CALCIUM CARBONATE) [Concomitant]
  15. NITRAZEPAM [Concomitant]
  16. APO-TRIMIP (TRIMIPRAMINE MALEATE) [Concomitant]
  17. DICETEL/BEL/ (PINAVERIUM BROMIDE) [Concomitant]
  18. RABEPRAZOLE SODIUM [Concomitant]
  19. OXYCONTIN [Concomitant]
  20. HYOSCINE HBR HYT [Concomitant]
  21. CIPRO [Concomitant]

REACTIONS (11)
  - ACTIVITIES OF DAILY LIVING IMPAIRED [None]
  - CONSTIPATION [None]
  - CONTUSION [None]
  - DEPRESSION [None]
  - DRUG INEFFECTIVE [None]
  - DRUG INTERACTION [None]
  - EMOTIONAL DISORDER [None]
  - HYPOTENSION [None]
  - LETHARGY [None]
  - LIVER FUNCTION TEST ABNORMAL [None]
  - RESPIRATORY TRACT INFECTION FUNGAL [None]
